FAERS Safety Report 9203668 (Version 1)
Quarter: 2013Q2

REPORT INFORMATION
  Report Type: Spontaneous
  Country: FR (occurrence: FR)
  Receive Date: 20130402
  Receipt Date: 20130402
  Transmission Date: 20140414
  Serious: Yes (Hospitalization)
  Sender: FDA-Public Use
  Company Number: FR-SANOFI-AVENTIS-2013SA033868

PATIENT
  Age: 59 Year
  Sex: Male

DRUGS (8)
  1. TAVANIC [Suspect]
     Indication: PRODUCT USED FOR UNKNOWN INDICATION
     Route: 065
     Dates: start: 20130122, end: 20130129
  2. LOVENOX [Suspect]
     Indication: PRODUCT USED FOR UNKNOWN INDICATION
     Route: 065
     Dates: start: 20130104, end: 20130130
  3. ROCEPHINE [Suspect]
     Indication: PRODUCT USED FOR UNKNOWN INDICATION
     Route: 065
     Dates: start: 20130110, end: 20130120
  4. ROCEPHINE [Suspect]
     Indication: PRODUCT USED FOR UNKNOWN INDICATION
     Route: 065
     Dates: start: 20130122, end: 20130130
  5. MOPRAL [Suspect]
     Indication: PRODUCT USED FOR UNKNOWN INDICATION
     Route: 048
     Dates: start: 20130121, end: 20130130
  6. VITAMIN B1 AND B6 [Concomitant]
     Dosage: IV THEN PO
     Dates: start: 20130103, end: 20130126
  7. PERFALGAN [Concomitant]
     Indication: PAIN
     Dates: start: 20130115, end: 20130124
  8. TRAMADOL [Concomitant]
     Dates: start: 20130124, end: 20130126

REACTIONS (1)
  - Agranulocytosis [Recovered/Resolved]
